FAERS Safety Report 9252369 (Version 1)
Quarter: 2013Q2

REPORT INFORMATION
  Report Type: Spontaneous
  Country: ZA (occurrence: ZA)
  Receive Date: 20130424
  Receipt Date: 20130424
  Transmission Date: 20140414
  Serious: Yes (Other)
  Sender: FDA-Public Use
  Company Number: PHHY2013ZA036062

PATIENT
  Age: 26 Year
  Sex: Female

DRUGS (1)
  1. RITALIN [Suspect]
     Indication: ATTENTION DEFICIT/HYPERACTIVITY DISORDER
     Dosage: 1.5 DF, DAILY

REACTIONS (3)
  - Intentional self-injury [Unknown]
  - Abnormal behaviour [Unknown]
  - Performance status decreased [Unknown]
